FAERS Safety Report 5723039-2 (Version None)
Quarter: 2008Q2

REPORT INFORMATION
  Report Type: 
  Country: None (occurrence: None)
  Receive Date: 20080430
  Receipt Date: 20080421
  Transmission Date: 20081010
  Serious: Yes (Hospitalization, Other)
  Sender: FDA-Public Use
  Company Number: RU-WYE-H02855008

PATIENT
  Sex: Male
  Weight: 70 kg

DRUGS (3)
  1. TEMSIROLIMUS [Suspect]
     Indication: RHABDOMYOSARCOMA
     Dosage: 105 MG (75%) ONCE WEEKLY
     Route: 042
     Dates: start: 20080212, end: 20080219
  2. DOXYCYCLINE [Concomitant]
     Indication: FURUNCLE
     Dosage: UNKNOWN
     Route: 065
     Dates: start: 20080220, end: 20080306
  3. MARCUMAR [Concomitant]
     Dosage: NOT PROVIDED
     Route: 065
     Dates: start: 20070401

REACTIONS (2)
  - MUCOSAL INFLAMMATION [None]
  - STOMATITIS [None]
